FAERS Safety Report 20603454 (Version 1)
Quarter: 2022Q1

REPORT INFORMATION
  Report Type: Spontaneous
  Country: None (occurrence: US)
  Receive Date: 20220316
  Receipt Date: 20220316
  Transmission Date: 20220424
  Serious: No
  Sender: FDA-Public Use
  Company Number: US-Breckenridge Pharmaceutical, Inc.-2126847

PATIENT
  Age: 92 Year
  Sex: Male

DRUGS (2)
  1. AZELASTINE HYDROCHLORIDE [Suspect]
     Active Substance: AZELASTINE HYDROCHLORIDE
     Indication: Nasal septum deviation
     Route: 045
  2. DICYCLOMINE [Suspect]
     Active Substance: DICYCLOMINE HYDROCHLORIDE
     Route: 048

REACTIONS (3)
  - Enuresis [Unknown]
  - Pollakiuria [Unknown]
  - Therapeutic product ineffective [Unknown]
